FAERS Safety Report 13740850 (Version 1)
Quarter: 2017Q3

REPORT INFORMATION
  Report Type: Spontaneous
  Country: US (occurrence: US)
  Receive Date: 20170710
  Receipt Date: 20170710
  Transmission Date: 20171127
  Serious: Yes (Hospitalization, Other)
  Sender: FDA-Public Use
  Company Number: None

PATIENT
  Age: 26 Year
  Sex: Female
  Weight: 123 kg

DRUGS (2)
  1. ZOSYN [Suspect]
     Active Substance: PIPERACILLIN SODIUM\TAZOBACTAM SODIUM
     Indication: BREAST ABSCESS
     Route: 041
     Dates: start: 20170420, end: 20170424
  2. ZOSYN [Suspect]
     Active Substance: PIPERACILLIN SODIUM\TAZOBACTAM SODIUM
     Indication: MASTITIS
     Route: 041
     Dates: start: 20170420, end: 20170424

REACTIONS (3)
  - Overdose [None]
  - Blood creatinine increased [None]
  - Therapy change [None]

NARRATIVE: CASE EVENT DATE: 20170422
